FAERS Safety Report 4966164-6 (Version None)
Quarter: 2006Q2

REPORT INFORMATION
  Report Type: 
  Country: None (occurrence: None)
  Receive Date: 20060407
  Receipt Date: 20060125
  Transmission Date: 20061013
  Serious: Yes (Hospitalization)
  Sender: FDA-Public Use
  Company Number: US-ROCHE-433811

PATIENT
  Age: 54 Year
  Sex: Female

DRUGS (4)
  1. BONIVA [Suspect]
     Indication: OSTEOPOROSIS
     Route: 048
     Dates: start: 20060123, end: 20060123
  2. CO-ENZYME Q [Concomitant]
  3. VITAMINS NOS [Concomitant]
  4. SOYBEAN OIL [Concomitant]
     Dosage: EXTRACT.

REACTIONS (5)
  - AORTIC VALVE DISEASE [None]
  - CHEST PAIN [None]
  - ELECTROCARDIOGRAM ABNORMAL [None]
  - MITRAL VALVE INCOMPETENCE [None]
  - TRICUSPID VALVE INCOMPETENCE [None]
